FAERS Safety Report 17686220 (Version 2)
Quarter: 2020Q3

REPORT INFORMATION
  Report Type: Report from Study
  Country: BR (occurrence: BR)
  Receive Date: 20200420
  Receipt Date: 20200917
  Transmission Date: 20201102
  Serious: Yes (Other)
  Sender: FDA-Public Use
  Company Number: PHHY2018BR068284

PATIENT
  Age: 79 Year
  Sex: Female
  Weight: 53 kg

DRUGS (6)
  1. SANDOSTATIN LAR DEPOT [Suspect]
     Active Substance: OCTREOTIDE ACETATE
     Indication: NEUROENDOCRINE TUMOUR
     Dosage: UNK
     Route: 065
     Dates: start: 2001
  2. SANDOSTATIN LAR DEPOT [Suspect]
     Active Substance: OCTREOTIDE ACETATE
     Indication: ACROMEGALY
     Dosage: 30 MG, QMO
     Route: 030
     Dates: start: 20171201
  3. SANDOSTATIN LAR DEPOT [Suspect]
     Active Substance: OCTREOTIDE ACETATE
     Dosage: UNK, QMO
     Route: 065
  4. ZOMETA [Suspect]
     Active Substance: ZOLEDRONIC ACID
     Indication: SPINE MALFORMATION
     Dosage: EVERY 6 MONTHS
     Route: 065
     Dates: start: 20180724
  5. ZOMETA [Suspect]
     Active Substance: ZOLEDRONIC ACID
     Indication: NEUROENDOCRINE TUMOUR
  6. ZOMETA [Suspect]
     Active Substance: ZOLEDRONIC ACID
     Indication: OSTEOPOROSIS

REACTIONS (27)
  - Arthralgia [Not Recovered/Not Resolved]
  - Weight increased [Not Recovered/Not Resolved]
  - Hunger [Not Recovered/Not Resolved]
  - Tongue blistering [Recovered/Resolved]
  - Feeling abnormal [Unknown]
  - Intervertebral disc protrusion [Not Recovered/Not Resolved]
  - Headache [Recovered/Resolved]
  - Urine abnormality [Not Recovered/Not Resolved]
  - Screaming [Unknown]
  - Pancreatic mass [Unknown]
  - Second primary malignancy [Unknown]
  - COVID-19 [Recovered/Resolved]
  - Sleep disorder due to a general medical condition [Unknown]
  - Back pain [Not Recovered/Not Resolved]
  - Pharyngeal inflammation [Recovered/Resolved]
  - Oropharyngeal pain [Recovered/Resolved]
  - Hypoaesthesia [Not Recovered/Not Resolved]
  - Limb discomfort [Not Recovered/Not Resolved]
  - Gait disturbance [Unknown]
  - Anaemia [Recovered/Resolved]
  - Adrenal mass [Unknown]
  - Dry throat [Not Recovered/Not Resolved]
  - Pharyngeal inflammation [Unknown]
  - Lung neoplasm malignant [Recovered/Resolved]
  - Diarrhoea [Recovering/Resolving]
  - Pain in extremity [Not Recovered/Not Resolved]
  - Throat tightness [Recovered/Resolved]

NARRATIVE: CASE EVENT DATE: 2018
